FAERS Safety Report 5848641-9 (Version None)
Quarter: 2008Q3

REPORT INFORMATION
  Report Type: 
  Country: None (occurrence: None)
  Receive Date: 20080818
  Receipt Date: 20080808
  Transmission Date: 20090109
  Serious: Yes (Death)
  Sender: FDA-Public Use
  Company Number: JP-SANOFI-SYNTHELABO-A01200808796

PATIENT
  Sex: Male
  Weight: 55 kg

DRUGS (15)
  1. MAGMITT [Concomitant]
     Indication: CONSTIPATION
     Route: 048
     Dates: start: 20080717
  2. BETAMETHASONE [Concomitant]
     Indication: MALAISE
     Route: 048
     Dates: start: 20080710
  3. GASTER D [Concomitant]
     Indication: PEPTIC ULCER
     Route: 048
     Dates: start: 20080708
  4. URINORM [Concomitant]
     Indication: HYPERURICAEMIA
     Route: 048
     Dates: start: 20080708
  5. BEZATOL SR [Concomitant]
     Indication: HYPERLIPIDAEMIA
     Route: 048
     Dates: start: 20080707
  6. LASIX [Concomitant]
     Indication: POLYURIA
     Route: 048
     Dates: start: 20080707
  7. KYTRIL [Concomitant]
     Indication: PREMEDICATION
     Route: 042
     Dates: start: 20080716, end: 20080716
  8. KYTRIL [Concomitant]
     Indication: NAUSEA
     Route: 042
     Dates: start: 20080716, end: 20080716
  9. KYTRIL [Concomitant]
     Route: 048
     Dates: start: 20080717
  10. KYTRIL [Concomitant]
     Route: 048
     Dates: start: 20080717
  11. DECADRON SRC [Concomitant]
     Indication: PREMEDICATION
     Route: 042
     Dates: start: 20080716, end: 20080716
  12. LEVOFOLINATE FOR IV INFUSION [Concomitant]
     Indication: COLON CANCER
     Route: 041
     Dates: start: 20080716, end: 20080717
  13. ELPLAT [Suspect]
     Indication: COLON CANCER
     Route: 041
     Dates: start: 20080716, end: 20080716
  14. FLUOROURACIL [Concomitant]
     Indication: COLON CANCER
     Dosage: 600 MG/BODY=392.2 MG/M2 IN BOLUS THEN 900 MG/BODY=588.2MG/M2 AS CONTINUOUS INFUSION
     Route: 040
     Dates: start: 20080716, end: 20080716
  15. FLUOROURACIL [Concomitant]
     Route: 041
     Dates: start: 20080716, end: 20080717

REACTIONS (2)
  - DUODENAL PERFORATION [None]
  - PERITONITIS [None]
